FAERS Safety Report 7921541-6 (Version None)
Quarter: 2011Q4

REPORT INFORMATION
  Report Type: 
  Country: None (occurrence: None)
  Receive Date: 20111117
  Receipt Date: 20111109
  Transmission Date: 20120403
  Serious: Yes (Hospitalization)
  Sender: FDA-Public Use
  Company Number: US-US-EMD SERONO, INC.-7095017

PATIENT
  Sex: Female
  Weight: 100 kg

DRUGS (7)
  1. BACLOFEN [Concomitant]
     Indication: MUSCLE SPASMS
  2. COMBIVENT [Concomitant]
     Indication: LUNG DISORDER
  3. REBIF [Suspect]
     Indication: MULTIPLE SCLEROSIS
     Route: 058
     Dates: start: 20090707, end: 20110701
  4. PLASMAPHORESIS [Concomitant]
     Indication: MULTIPLE SCLEROSIS
  5. FENTANYL-100 [Concomitant]
     Indication: PAIN
  6. CELEXA [Concomitant]
     Indication: MOOD DISORDER DUE TO A GENERAL MEDICAL CONDITION
  7. COUMADIN [Concomitant]
     Indication: PULMONARY EMBOLISM

REACTIONS (3)
  - CATHETER SITE INFECTION [None]
  - MULTIPLE SCLEROSIS RELAPSE [None]
  - BACTERIAL SEPSIS [None]
